FAERS Safety Report 10419965 (Version 2)
Quarter: 2014Q3

REPORT INFORMATION
  Report Type: Report from Study
  Country: CA (occurrence: CA)
  Receive Date: 20140829
  Receipt Date: 20140829
  Transmission Date: 20150326
  Serious: Yes (Hospitalization)
  Sender: FDA-Public Use
  Company Number: CA-ABBVIE-14P-028-1273171-00

PATIENT
  Age: 39 Year
  Sex: Female

DRUGS (3)
  1. IMURAN [Suspect]
     Active Substance: AZATHIOPRINE
     Indication: CROHN^S DISEASE
  2. HUMIRA [Suspect]
     Active Substance: ADALIMUMAB
     Indication: CROHN^S DISEASE
     Route: 058
     Dates: start: 20081211, end: 201403
  3. HUMIRA [Suspect]
     Active Substance: ADALIMUMAB
     Route: 058
     Dates: start: 201403

REACTIONS (17)
  - Crohn^s disease [Unknown]
  - Diabetes mellitus [Recovered/Resolved]
  - Anal fistula [Unknown]
  - Crohn^s disease [Recovered/Resolved]
  - Blood potassium decreased [Unknown]
  - Rectal discharge [Not Recovered/Not Resolved]
  - Drug ineffective [Recovering/Resolving]
  - Clostridium difficile infection [Unknown]
  - Drug ineffective [Unknown]
  - Frequent bowel movements [Not Recovered/Not Resolved]
  - Blood magnesium decreased [Unknown]
  - Intestinal mucosal hypertrophy [Unknown]
  - Erythema nodosum [Recovered/Resolved]
  - Haematochezia [Not Recovered/Not Resolved]
  - Fistula [Not Recovered/Not Resolved]
  - Anaemia [Unknown]
  - Scar [Unknown]

NARRATIVE: CASE EVENT DATE: 201403
